FAERS Safety Report 5766084-3 (Version None)
Quarter: 2008Q2

REPORT INFORMATION
  Report Type: 
  Country: None (occurrence: None)
  Receive Date: 20080609
  Receipt Date: 20080222
  Transmission Date: 20081010
  Serious: No
  Sender: FDA-Public Use
  Company Number: 002#1#2008-00052

PATIENT
  Age: 59 Year
  Sex: Male
  Weight: 98.8842 kg

DRUGS (3)
  1. NEUPRO [Suspect]
     Indication: RESTLESS LEGS SYNDROME
     Dosage: 2MG/24H, 1 IN 1 D, TRANSDERMAL
     Route: 062
     Dates: start: 20071001
  2. GABAPENTIN [Concomitant]
  3. CLONAZEPAM [Concomitant]

REACTIONS (3)
  - APPLICATION SITE IRRITATION [None]
  - APPLICATION SITE REACTION [None]
  - OFF LABEL USE [None]
